FAERS Safety Report 13574183 (Version 1)
Quarter: 2017Q2

REPORT INFORMATION
  Report Type: Spontaneous
  Country: US (occurrence: US)
  Receive Date: 20170523
  Receipt Date: 20170523
  Transmission Date: 20170830
  Serious: Yes (Hospitalization, Other)
  Sender: FDA-Public Use
  Company Number: US-TEVA-770655USA

PATIENT
  Age: 18 Year
  Sex: Female

DRUGS (3)
  1. 4 FLUOROAMPHETAMINE [Suspect]
     Active Substance: 4-FLUOROAMPHETAMINE
     Route: 065
  2. MODAFINIL. [Suspect]
     Active Substance: MODAFINIL
     Route: 065
  3. METHYLPHENIDATE. [Suspect]
     Active Substance: METHYLPHENIDATE
     Route: 065

REACTIONS (2)
  - Congestive cardiomyopathy [Unknown]
  - Cardiac disorder [Unknown]
